FAERS Safety Report 10698502 (Version 2)
Quarter: 2015Q1

REPORT INFORMATION
  Report Type: Spontaneous
  Country: US (occurrence: US)
  Receive Date: 20150108
  Receipt Date: 20150203
  Transmission Date: 20150721
  Serious: Yes (Other)
  Sender: FDA-Public Use
  Company Number: US-009507513-1501USA001779

PATIENT

DRUGS (1)
  1. CLINORIL [Suspect]
     Active Substance: SULINDAC
     Dosage: 200 MG, BID
     Route: 064

REACTIONS (2)
  - Necrotising colitis [Unknown]
  - Foetal exposure during pregnancy [Recovered/Resolved]
